FAERS Safety Report 7205906-6 (Version None)
Quarter: 2010Q4

REPORT INFORMATION
  Report Type: 
  Country: None (occurrence: None)
  Receive Date: 20101231
  Receipt Date: 20101221
  Transmission Date: 20110411
  Serious: Yes (Other)
  Sender: FDA-Public Use
  Company Number: IL-SANOFI-AVENTIS-2010SA077712

PATIENT
  Age: 60 Year
  Sex: Female

DRUGS (1)
  1. MULTAQ [Suspect]
     Route: 048

REACTIONS (2)
  - ATRIAL FIBRILLATION [None]
  - SICK SINUS SYNDROME [None]
